FAERS Safety Report 11474404 (Version 1)
Quarter: 2015Q3

REPORT INFORMATION
  Report Type: Spontaneous
  Country: US (occurrence: None)
  Receive Date: 20150902
  Receipt Date: 20150902
  Transmission Date: 20151125
  Serious: Yes (Hospitalization)
  Sender: FDA-Public Use
  Company Number: A-US2014-105737

PATIENT
  Age: 23 Year
  Sex: Male

DRUGS (5)
  1. ADCIRCA [Concomitant]
     Active Substance: TADALAFIL
  2. LETAIRIS [Concomitant]
     Active Substance: AMBRISENTAN
  3. LASIX [Concomitant]
     Active Substance: FUROSEMIDE
  4. VELETRI [Suspect]
     Active Substance: EPOPROSTENOL
     Indication: PORTOPULMONARY HYPERTENSION
     Dosage: 22 NG/KG, PER MIN, INTRAVENOUS
     Route: 042
     Dates: start: 20140113
  5. IRON [Concomitant]
     Active Substance: IRON

REACTIONS (6)
  - Fatigue [None]
  - Pyrexia [None]
  - Blood culture positive [None]
  - Chills [None]
  - Medical device change [None]
  - Device related sepsis [None]
